FAERS Safety Report 8847070 (Version 1)
Quarter: 2012Q4

REPORT INFORMATION
  Report Type: Spontaneous
  Country: US (occurrence: None)
  Receive Date: 20121017
  Receipt Date: 20121017
  Transmission Date: 20130627
  Serious: Yes (Other)
  Sender: FDA-Public Use
  Company Number: None

PATIENT
  Age: 70 Year
  Sex: Female

DRUGS (1)
  1. FORTEO [Suspect]
     Route: 048
     Dates: start: 20120625, end: 20121016

REACTIONS (2)
  - Angina pectoris [None]
  - Nausea [None]
